FAERS Safety Report 7622627-6 (Version None)
Quarter: 2011Q3

REPORT INFORMATION
  Report Type: 
  Country: None (occurrence: None)
  Receive Date: 20110712
  Receipt Date: 20110627
  Transmission Date: 20111222
  Serious: Yes (Death, Hospitalization, Other)
  Sender: FDA-Public Use
  Company Number: 2011MA008076

PATIENT
  Age: 58 Year
  Sex: Female

DRUGS (5)
  1. CITALOPRAM HYDROBROMIDE [Suspect]
     Indication: PRODUCT USED FOR UNKNOWN INDICATION
     Dosage: 20 MG;QD;
  2. HYDROCHLOROTHIAZIDE [Concomitant]
  3. METFORMIN HCL [Concomitant]
  4. RAMIPRIL [Concomitant]
  5. ZOLPIDEM [Concomitant]

REACTIONS (3)
  - COMPLETED SUICIDE [None]
  - MENTAL DISORDER [None]
  - RESTLESSNESS [None]
